FAERS Safety Report 18699614 (Version 7)
Quarter: 2021Q3

REPORT INFORMATION
  Report Type: Report from Study
  Country: CA (occurrence: CA)
  Receive Date: 20210104
  Receipt Date: 20210922
  Transmission Date: 20211014
  Serious: Yes (Hospitalization)
  Sender: FDA-Public Use
  Company Number: CA-INCYTE CORPORATION-2020IN011391

PATIENT

DRUGS (4)
  1. JAKAVI [Suspect]
     Active Substance: RUXOLITINIB
     Dosage: 5 MG, QD (STRENGTH 5 MG)
     Route: 048
     Dates: start: 20210911
  2. JAKAVI [Suspect]
     Active Substance: RUXOLITINIB
     Indication: SPLENOMEGALY
     Dosage: 10 MG, BID (STRENGTH 10 MG)
     Route: 048
  3. JAKAVI [Suspect]
     Active Substance: RUXOLITINIB
     Indication: MYELOFIBROSIS
     Dosage: 20 MG, BID  (STRENGTH 20 MG)
     Route: 048
     Dates: start: 20201102, end: 20201221
  4. JAKAVI [Suspect]
     Active Substance: RUXOLITINIB
     Dosage: 10 MG, BID  (STRENGTH 10 MG)
     Route: 048
     Dates: start: 20201102, end: 20210816

REACTIONS (18)
  - Dizziness [Unknown]
  - Sleep disorder [Recovering/Resolving]
  - Viraemia [Unknown]
  - Pain [Unknown]
  - Red blood cell count decreased [Recovered/Resolved]
  - Hypotension [Unknown]
  - Inappropriate schedule of product administration [Unknown]
  - Fatigue [Not Recovered/Not Resolved]
  - Platelet count decreased [Unknown]
  - Spleen disorder [Unknown]
  - Blood potassium increased [Recovered/Resolved]
  - Nausea [Unknown]
  - Haemorrhage [Unknown]
  - Haemoglobin decreased [Unknown]
  - Muscle spasms [Recovered/Resolved]
  - Asthenia [Unknown]
  - Abdominal rigidity [Recovered/Resolved]
  - Pulmonary oedema [Unknown]

NARRATIVE: CASE EVENT DATE: 20201103
